FAERS Safety Report 5567886-9 (Version None)
Quarter: 2007Q4

REPORT INFORMATION
  Report Type: 
  Country: None (occurrence: None)
  Receive Date: 20071218
  Receipt Date: 20071206
  Transmission Date: 20080405
  Serious: Yes (Death)
  Sender: FDA-Public Use
  Company Number: 07H-163-0313561-00

PATIENT
  Age: 66 Year
  Sex: Male

DRUGS (10)
  1. A-METHOPRED INJECTION (METHYLPREDNISOLONE SODIUM SUCCINATE) (METHYLPRE [Suspect]
     Indication: POLYMYOSITIS
     Dosage: INTRAVENOUS
     Route: 042
  2. PROPOFOL [Suspect]
     Indication: SEDATIVE THERAPY
     Dosage: 30 MCG/KG/MIN, INFUSION
  3. PREDNISONE [Concomitant]
  4. MYCOPHENOLATE (MYCOPHENOLATE MOFETIL) [Concomitant]
  5. CYCLOSPORINE [Suspect]
     Indication: IMMUNOSUPPRESSANT DRUG THERAPY
  6. COLCHICINE (COLCHINE) [Suspect]
     Indication: GOUT
  7. SIMVASTATIN [Suspect]
     Indication: HYPERLIPIDAEMIA
  8. PREDNISONE [Concomitant]
  9. MYCOPHENOLATE (MYCOPHENOLATE MOFETIL) [Concomitant]
  10. INSULIN (INSULIN) [Concomitant]

REACTIONS (7)
  - DRUG INTERACTION POTENTIATION [None]
  - HAEMODIALYSIS [None]
  - MITOCHONDRIAL CYTOPATHY [None]
  - MYOPATHY TOXIC [None]
  - PNEUMONIA [None]
  - RHABDOMYOLYSIS [None]
  - SEPTIC SHOCK [None]
